FAERS Safety Report 12141979 (Version 1)
Quarter: 2016Q1

REPORT INFORMATION
  Report Type: Spontaneous
  Country: US (occurrence: US)
  Receive Date: 20160303
  Receipt Date: 20160303
  Transmission Date: 20160526
  Serious: Yes (Other)
  Sender: FDA-Public Use
  Company Number: US-BAYER-2016-039086

PATIENT
  Age: 21 Year
  Sex: Female

DRUGS (1)
  1. MIRENA [Suspect]
     Active Substance: LEVONORGESTREL
     Dosage: 20 MCG/24HR, CONT
     Route: 015
     Dates: start: 201401, end: 201505

REACTIONS (5)
  - Vision blurred [None]
  - Vomiting [None]
  - Benign intracranial hypertension [None]
  - Headache [None]
  - Dizziness [None]

NARRATIVE: CASE EVENT DATE: 201404
